FAERS Safety Report 8417190-6 (Version None)
Quarter: 2012Q2

REPORT INFORMATION
  Report Type: 
  Country: None (occurrence: None)
  Receive Date: 20120606
  Receipt Date: 20120601
  Transmission Date: 20120825
  Serious: Yes (Other)
  Sender: FDA-Public Use
  Company Number: BR-ROCHE-1074820

PATIENT
  Sex: Female

DRUGS (7)
  1. PREDNISONE TAB [Concomitant]
  2. CALCIUM CARBONATE [Concomitant]
  3. MABTHERA [Suspect]
     Indication: RHEUMATOID ARTHRITIS
     Dates: start: 20111201
  4. PLAQUENIL [Concomitant]
  5. MABTHERA [Suspect]
     Dates: start: 20120524
  6. OMEPRAZOLE [Concomitant]
  7. ALENDRONATE SODIUM [Concomitant]

REACTIONS (2)
  - PNEUMONIA [None]
  - PLEURAL EFFUSION [None]
